FAERS Safety Report 8456726-6 (Version None)
Quarter: 2012Q2

REPORT INFORMATION
  Report Type: 
  Country: None (occurrence: None)
  Receive Date: 20120323
  Receipt Date: 20111215
  Transmission Date: 20120825
  Serious: Yes (Other)
  Sender: FDA-Public Use
  Company Number: 163-21880-11091807

PATIENT
  Age: 67 Year
  Sex: Female
  Weight: 48.9885 kg

DRUGS (19)
  1. SYNTHROID [Concomitant]
  2. ACTOS [Concomitant]
  3. POTASSIUM CHLORIDE [Concomitant]
  4. CALCIUM 600 + D (LEKOVIT CA) [Concomitant]
  5. ENALAPRIL MALEATE [Concomitant]
  6. LEVOTHYROXINE SODIUM [Concomitant]
  7. LOMOTIL [Concomitant]
  8. MULTI-VITAMINS [Concomitant]
  9. SERTRALINE HCL (SERTRALINE HYDROCHLORIDE) [Concomitant]
  10. WARFARIN SODIUM [Concomitant]
  11. DESFERAL [Concomitant]
  12. OSTEO BI-FLEX [Concomitant]
  13. CALTRATE PLUS [Concomitant]
  14. VITAMIN B12 [Concomitant]
  15. MAGNESIUM [Concomitant]
  16. LENALIDOMIDE [Suspect]
     Indication: MYELODYSPLASTIC SYNDROME
     Dosage: 10 MG, X 14 CAPS, PO : 15 MG, HS, PO
     Route: 048
     Dates: start: 20110904, end: 20110908
  17. LENALIDOMIDE [Suspect]
     Indication: MYELODYSPLASTIC SYNDROME
     Dosage: 10 MG, X 14 CAPS, PO : 15 MG, HS, PO
     Route: 048
     Dates: start: 20110829
  18. SIMVASTATIN [Concomitant]
  19. ASPARTATE [Concomitant]

REACTIONS (4)
  - DIARRHOEA [None]
  - THROMBOCYTOPENIA [None]
  - RASH [None]
  - FATIGUE [None]
